FAERS Safety Report 25391955 (Version 1)
Quarter: 2025Q2

REPORT INFORMATION
  Report Type: Spontaneous
  Country: ES (occurrence: ES)
  Receive Date: 20250603
  Receipt Date: 20250603
  Transmission Date: 20250717
  Serious: Yes (Death, Hospitalization)
  Sender: SANDOZ
  Company Number: None

PATIENT
  Age: 66 Year
  Sex: Male

DRUGS (5)
  1. CIPROFLOXACIN [Suspect]
     Active Substance: CIPROFLOXACIN
     Indication: Pneumonia
     Dosage: 1200 MG, QD (2049A)
     Route: 042
     Dates: start: 20250127, end: 20250131
  2. CEFAZOLIN [Suspect]
     Active Substance: CEFAZOLIN
     Indication: Pneumonia
     Dosage: 6 G, QD (583SO)
     Route: 042
     Dates: start: 20250127, end: 20250131
  3. LINEZOLID [Suspect]
     Active Substance: LINEZOLID
     Indication: Pneumonia
     Dosage: 1200 MG, QD (1279A)
     Route: 042
     Dates: start: 20250120, end: 20250124
  4. ANIDULAFUNGIN [Concomitant]
     Active Substance: ANIDULAFUNGIN
     Indication: Pneumonia
     Dosage: 1 G, QD (8100A)
     Route: 042
     Dates: start: 20250122, end: 20250131
  5. CEFAZOLIN [Concomitant]
     Active Substance: CEFAZOLIN
     Indication: Pneumonia
     Dosage: 4 G, QD (583SO)
     Route: 042
     Dates: start: 20250116, end: 20250126

REACTIONS (1)
  - Pancytopenia [Fatal]

NARRATIVE: CASE EVENT DATE: 20250128
